FAERS Safety Report 8773272 (Version 1)
Quarter: 2012Q4

REPORT INFORMATION
  Report Type: 
  Country: US (occurrence: US)
  Receive Date: 20120907
  Receipt Date: 20120907
  Transmission Date: 20130627
  Serious: Yes (Other)
  Sender: FDA-Public Use
  Company Number: US-SANOFI-AVENTIS-2012SA061884

PATIENT
  Sex: Male

DRUGS (3)
  1. ALLEGRA [Suspect]
     Indication: ALLERGY
     Route: 048
  2. PLAVIX [Suspect]
     Route: 065
  3. ZOCOR [Suspect]
     Route: 065

REACTIONS (1)
  - Stent placement [Unknown]
